FAERS Safety Report 12416460 (Version 1)
Quarter: 2016Q2

REPORT INFORMATION
  Report Type: Spontaneous
  Country: CN (occurrence: CN)
  Receive Date: 20160530
  Receipt Date: 20160530
  Transmission Date: 20160815
  Serious: Yes (Other)
  Sender: FDA-Public Use
  Company Number: CN-JNJFOC-20140800622

PATIENT

DRUGS (3)
  1. TOPAMAX [Suspect]
     Active Substance: TOPIRAMATE
     Indication: POST-TRAUMATIC EPILEPSY
     Route: 048
  2. LEVETIRACETAM. [Suspect]
     Active Substance: LEVETIRACETAM
     Indication: POST-TRAUMATIC EPILEPSY
     Route: 065
  3. CARBAMAZEPIN [Suspect]
     Active Substance: CARBAMAZEPINE
     Indication: POST-TRAUMATIC EPILEPSY
     Route: 065

REACTIONS (9)
  - Leukopenia [Unknown]
  - Nausea [Unknown]
  - Emotional disorder [Unknown]
  - Hepatic function abnormal [Unknown]
  - Somnolence [Unknown]
  - Rash [Unknown]
  - Renal impairment [Unknown]
  - Dizziness [Unknown]
  - Diarrhoea [Unknown]
